FAERS Safety Report 8370630-3 (Version None)
Quarter: 2012Q2

REPORT INFORMATION
  Report Type: 
  Country: None (occurrence: None)
  Receive Date: 20120518
  Receipt Date: 20120507
  Transmission Date: 20120825
  Serious: Yes (Hospitalization, Other)
  Sender: FDA-Public Use
  Company Number: US-ELI_LILLY_AND_COMPANY-US201205003609

PATIENT
  Sex: Female

DRUGS (7)
  1. HUMALOG [Suspect]
     Indication: GESTATIONAL DIABETES
     Dosage: UNK, UNKNOWN
  2. METFORMIN HCL [Concomitant]
  3. NOVOLOG [Concomitant]
     Dosage: UNK
  4. NOVOLIN 70/30 [Concomitant]
     Indication: BLOOD GLUCOSE INCREASED
     Dosage: UNK, PRN
  5. HUMULIN 70/30 [Suspect]
     Dosage: 15 U, OTHER
  6. HUMULIN 70/30 [Suspect]
     Indication: DIABETES MELLITUS
     Dosage: 25 U, EACH MORNING
  7. HUMULIN 70/30 [Suspect]
     Dosage: 15 U, EACH EVENING

REACTIONS (10)
  - BLOOD PRESSURE INCREASED [None]
  - CONVULSION [None]
  - TREMOR [None]
  - SOMNOLENCE [None]
  - GESTATIONAL DIABETES [None]
  - INJECTION SITE PAIN [None]
  - MATERNAL EXPOSURE DURING PREGNANCY [None]
  - WEIGHT INCREASED [None]
  - DRUG INEFFECTIVE [None]
  - BLOOD GLUCOSE INCREASED [None]
